FAERS Safety Report 5110395-1 (Version None)
Quarter: 2006Q3

REPORT INFORMATION
  Report Type: 
  Country: None (occurrence: None)
  Receive Date: 20060921
  Receipt Date: 20060911
  Transmission Date: 20061208
  Serious: Yes (Other)
  Sender: FDA-Public Use
  Company Number: GB-JNJFOC-20060903731

PATIENT
  Age: 6 Year
  Sex: Male
  Weight: 23.3 kg

DRUGS (3)
  1. CONCERTA [Suspect]
     Route: 048
  2. CONCERTA [Suspect]
     Indication: ATTENTION DEFICIT/HYPERACTIVITY DISORDER
     Route: 048
  3. MELATONA [Concomitant]
     Indication: INSOMNIA
     Route: 048

REACTIONS (1)
  - CHEST PAIN [None]
